FAERS Safety Report 22808275 (Version 3)
Quarter: 2023Q4

REPORT INFORMATION
  Report Type: Report from Study
  Country: US (occurrence: US)
  Receive Date: 20230810
  Receipt Date: 20231130
  Transmission Date: 20240110
  Serious: Yes (Hospitalization)
  Sender: FDA-Public Use
  Company Number: US-002147023-NVSC2023US172869

PATIENT
  Age: 44 Year
  Sex: Male

DRUGS (1)
  1. ENTRESTO [Suspect]
     Active Substance: SACUBITRIL\VALSARTAN
     Indication: Product used for unknown indication
     Dosage: 1 DOSAGE FORM (49/51 MG)
     Route: 065

REACTIONS (7)
  - Pulmonary embolism [Recovering/Resolving]
  - Ejection fraction abnormal [Unknown]
  - Influenza [Recovered/Resolved]
  - Peripheral swelling [Recovered/Resolved]
  - Contusion [Not Recovered/Not Resolved]
  - Illness [Unknown]
  - Therapeutic product effect delayed [Recovered/Resolved]

NARRATIVE: CASE EVENT DATE: 20230201
